FAERS Safety Report 4819800-9 (Version None)
Quarter: 2005Q4

REPORT INFORMATION
  Report Type: 
  Country: None (occurrence: None)
  Receive Date: 20051102
  Receipt Date: 20051018
  Transmission Date: 20060501
  Serious: Yes (Hospitalization)
  Sender: FDA-Public Use
  Company Number: 2005-0008776

PATIENT
  Age: 69 Year
  Sex: Female

DRUGS (10)
  1. HEPSERA [Suspect]
     Indication: HEPATITIS B
     Dosage: 10 MG, 1 IN 2 D, ORAL
     Route: 048
     Dates: start: 20050323, end: 20050928
  2. HEPSERA [Suspect]
     Indication: HEPATITIS B
     Dosage: 10 MG, 1 IN 2 D, ORAL
     Route: 048
     Dates: start: 20050929
  3. LEVOTHYROXINE SODIUM [Concomitant]
  4. LAMIVUDINE [Concomitant]
  5. PYRIDOXAL PHOSPHATE (PYRIDOXAL PHOSPHATE) [Concomitant]
  6. URSODEOXYCHOLIC ACID (UROSODEOXYCHOLIC ACID) [Concomitant]
  7. TAURINE (TAURINE) [Concomitant]
  8. MECOBALAMIN (MECOBALAMIN) [Concomitant]
  9. MAGNESIUM OXIDE (MAGNESIUM OXIDE) [Concomitant]
  10. ATORVASTATIN CALCIUM [Concomitant]

REACTIONS (8)
  - ABASIA [None]
  - BLOOD ALKALINE PHOSPHATASE INCREASED [None]
  - BLOOD CREATININE INCREASED [None]
  - BLOOD POTASSIUM DECREASED [None]
  - DYSSTASIA [None]
  - HYPOPHOSPHATAEMIA [None]
  - MUSCULAR WEAKNESS [None]
  - NERVE ROOT LESION [None]
